FAERS Safety Report 8724157 (Version 2)
Quarter: 2012Q4

REPORT INFORMATION
  Report Type: 
  Country: GB (occurrence: GB)
  Receive Date: 20120815
  Receipt Date: 20121106
  Transmission Date: 20130627
  Serious: Yes (Death)
  Sender: FDA-Public Use
  Company Number: PHFR2012GB004471

PATIENT
  Age: 48 Year
  Sex: Male

DRUGS (3)
  1. CLOZARIL [Suspect]
     Indication: SCHIZOPHRENIA
     Dosage: 250 mg, nocte
     Dates: start: 20010701
  2. PREGABALIN [Concomitant]
     Dosage: 300 mg, UNK
  3. CLOMIPRAMINE [Concomitant]
     Dosage: 150 mg, nocte

REACTIONS (1)
  - Death [Fatal]
